FAERS Safety Report 13398051 (Version 2)
Quarter: 2017Q2

REPORT INFORMATION
  Report Type: Report from Study
  Country: JP (occurrence: JP)
  Receive Date: 20170403
  Receipt Date: 20170419
  Transmission Date: 20170830
  Serious: Yes (Death, Hospitalization)
  Sender: FDA-Public Use
  Company Number: JP-BAYER-2017-062383

PATIENT
  Age: 64 Year
  Sex: Male
  Weight: 54.7 kg

DRUGS (7)
  1. COLONEL [Concomitant]
     Active Substance: CALCIUM POLYCARBOPHIL
     Indication: RECTAL CANCER
     Dosage: 500 MG, TID
     Route: 048
     Dates: start: 20111102, end: 20170315
  2. HOKUNALIN [Concomitant]
     Active Substance: TULOBUTEROL
     Indication: COUGH
     Dosage: 2 MG, QD
     Route: 062
     Dates: start: 20161214, end: 20170314
  3. URIEF [Concomitant]
     Active Substance: SILODOSIN
     Indication: BENIGN PROSTATIC HYPERPLASIA
     Dosage: 4 MG, BID
     Route: 048
     Dates: start: 20110811, end: 20170315
  4. DEXTROMETHORPHAN HYDROBROMIDE. [Concomitant]
     Active Substance: DEXTROMETHORPHAN HYDROBROMIDE
     Indication: COUGH
     Dosage: 15 MG, TID
     Route: 048
     Dates: start: 20161214, end: 20170314
  5. REGORAFENIB [Suspect]
     Active Substance: REGORAFENIB
     Indication: RECTAL CANCER
     Dosage: 120 MG, QD
     Route: 048
     Dates: start: 20170215, end: 20170222
  6. REGORAFENIB [Suspect]
     Active Substance: REGORAFENIB
     Indication: RECTAL CANCER
     Dosage: 120 MG, QD
     Route: 048
     Dates: start: 20170227, end: 20170314
  7. CALONAL [Concomitant]
     Active Substance: ACETAMINOPHEN
     Indication: RECTAL CANCER
     Dosage: 500 MG, TID
     Route: 048
     Dates: start: 20160928, end: 20170315

REACTIONS (7)
  - Cough [Fatal]
  - Pyrexia [Fatal]
  - Malaise [Fatal]
  - Palmar-plantar erythrodysaesthesia syndrome [Recovered/Resolved]
  - Pneumonia [Fatal]
  - Incisional hernia [None]
  - Inflammation [Fatal]

NARRATIVE: CASE EVENT DATE: 20170222
